FAERS Safety Report 15333887 (Version 1)
Quarter: 2018Q3

REPORT INFORMATION
  Report Type: Spontaneous
  Country: US (occurrence: US)
  Receive Date: 20180825
  Receipt Date: 20180825
  Transmission Date: 20181010
  Serious: No
  Sender: FDA-Public Use
  Company Number: None

PATIENT
  Age: 75 Year
  Sex: Male
  Weight: 60.75 kg

DRUGS (12)
  1. LEVETIRACETAM. [Concomitant]
     Active Substance: LEVETIRACETAM
  2. ASPIRIN. [Concomitant]
     Active Substance: ASPIRIN
  3. CIALIS [Concomitant]
     Active Substance: TADALAFIL
  4. ALENDRONATE [Concomitant]
     Active Substance: ALENDRONATE SODIUM
  5. ROSUVASTATIN. [Concomitant]
     Active Substance: ROSUVASTATIN
  6. DEXILANT [Concomitant]
     Active Substance: DEXLANSOPRAZOLE
  7. FENOFIBRATE. [Concomitant]
     Active Substance: FENOFIBRATE
  8. BELSOMRA [Concomitant]
     Active Substance: SUVOREXANT
  9. ZOLPIDEM [Suspect]
     Active Substance: ZOLPIDEM\ZOLPIDEM TARTRATE
     Indication: INSOMNIA
     Dates: start: 20180824, end: 20180825
  10. ATENOLOL. [Concomitant]
     Active Substance: ATENOLOL
  11. MULTIVITAMIN [Concomitant]
     Active Substance: VITAMINS
  12. AMLODIPINE [Concomitant]
     Active Substance: AMLODIPINE BESYLATE

REACTIONS (2)
  - Agitation [None]
  - Insomnia [None]

NARRATIVE: CASE EVENT DATE: 20180824
